FAERS Safety Report 19091877 (Version 1)
Quarter: 2021Q2

REPORT INFORMATION
  Report Type: Spontaneous
  Country: US (occurrence: US)
  Receive Date: 20210402
  Receipt Date: 20210402
  Transmission Date: 20210717
  Serious: Yes (Hospitalization)
  Sender: FDA-Public Use
  Company Number: None

PATIENT
  Age: 86 Year
  Sex: Female
  Weight: 55.35 kg

DRUGS (23)
  1. LOSARTAN AND HYDROCHLOROTHIAZIDE [Concomitant]
     Active Substance: HYDROCHLOROTHIAZIDE\LOSARTAN POTASSIUM
  2. MVI [Concomitant]
     Active Substance: VITAMINS
  3. VITAMIN D [Concomitant]
     Active Substance: VITAMIN D NOS
  4. PERCOET [Concomitant]
  5. CALCIUM [Concomitant]
     Active Substance: CALCIUM
  6. CLONAZEPAM. [Concomitant]
     Active Substance: CLONAZEPAM
  7. SUTENT [Concomitant]
     Active Substance: SUNITINIB MALATE
  8. CODEINE [Concomitant]
     Active Substance: CODEINE
  9. CYANOCOBALAMIN. [Concomitant]
     Active Substance: CYANOCOBALAMIN
  10. GABAPENTIN. [Concomitant]
     Active Substance: GABAPENTIN
  11. LEVAQUIN [Concomitant]
     Active Substance: LEVOFLOXACIN
  12. LIDOCAINE. [Concomitant]
     Active Substance: LIDOCAINE
  13. PROLIA [Concomitant]
     Active Substance: DENOSUMAB
  14. ELIQUIS [Concomitant]
     Active Substance: APIXABAN
  15. SIMVASTATIN. [Concomitant]
     Active Substance: SIMVASTATIN
  16. ZARXIO [Suspect]
     Active Substance: FILGRASTIM-SNDZ
     Indication: PANCREATIC CARCINOMA
     Route: 058
  17. IRBESARTAN. [Concomitant]
     Active Substance: IRBESARTAN
  18. LEVOTHYROXINE. [Concomitant]
     Active Substance: LEVOTHYROXINE
  19. CREON [Concomitant]
     Active Substance: PANCRELIPASE AMYLASE\PANCRELIPASE LIPASE\PANCRELIPASE PROTEASE
  20. DEXAMETHASONE. [Concomitant]
     Active Substance: DEXAMETHASONE
  21. PURE NAC [Concomitant]
  22. ARANESP [Suspect]
     Active Substance: DARBEPOETIN ALFA
     Indication: PANCREATIC CARCINOMA
     Route: 058
     Dates: start: 20200914
  23. SYMBICORT [Concomitant]
     Active Substance: BUDESONIDE\FORMOTEROL FUMARATE DIHYDRATE

REACTIONS (1)
  - Hospitalisation [None]

NARRATIVE: CASE EVENT DATE: 20210402
